FAERS Safety Report 10359162 (Version 1)
Quarter: 2014Q3

REPORT INFORMATION
  Report Type: Report from Study
  Country: AU (occurrence: AU)
  Receive Date: 20140804
  Receipt Date: 20140804
  Transmission Date: 20150326
  Serious: Yes (Other)
  Sender: FDA-Public Use
  Company Number: PHHY2014AU091216

PATIENT
  Age: 82 Year
  Sex: Male

DRUGS (1)
  1. SANDOSTATIN LAR DEPOT [Suspect]
     Active Substance: OCTREOTIDE ACETATE
     Indication: CARCINOID SYNDROME
     Dosage: 30 MG, UNK
     Route: 030

REACTIONS (7)
  - Hypotension [Recovering/Resolving]
  - Aphagia [Recovering/Resolving]
  - Feeling abnormal [Recovering/Resolving]
  - Urinary tract infection [Recovering/Resolving]
  - Blood glucose increased [Recovering/Resolving]
  - Urine abnormality [Recovering/Resolving]
  - Renal impairment [Recovering/Resolving]

NARRATIVE: CASE EVENT DATE: 20140709
